FAERS Safety Report 6636336-3 (Version None)
Quarter: 2010Q1

REPORT INFORMATION
  Report Type: 
  Country: None (occurrence: None)
  Receive Date: 20100316
  Receipt Date: 20100303
  Transmission Date: 20100710
  Serious: Yes (Hospitalization)
  Sender: FDA-Public Use
  Company Number: JP-ROCHE-675517

PATIENT
  Sex: Male
  Weight: 53 kg

DRUGS (14)
  1. TOCILIZUMAB [Suspect]
     Indication: RHEUMATOID ARTHRITIS
     Route: 041
     Dates: start: 20081022, end: 20081022
  2. TOCILIZUMAB [Suspect]
     Route: 041
     Dates: start: 20081118, end: 20081118
  3. TOCILIZUMAB [Suspect]
     Route: 041
     Dates: start: 20081216, end: 20081216
  4. TOCILIZUMAB [Suspect]
     Route: 041
     Dates: start: 20090114, end: 20090114
  5. TOCILIZUMAB [Suspect]
     Route: 041
     Dates: start: 20090212, end: 20090212
  6. TOCILIZUMAB [Suspect]
     Route: 041
     Dates: start: 20090313, end: 20090313
  7. TOCILIZUMAB [Suspect]
     Route: 041
     Dates: start: 20090408, end: 20090408
  8. TOCILIZUMAB [Suspect]
     Route: 041
     Dates: start: 20090507, end: 20090507
  9. TOCILIZUMAB [Suspect]
     Route: 041
     Dates: start: 20090603
  10. MELOXICAM [Suspect]
     Indication: RHEUMATOID ARTHRITIS
     Dosage: MOBIC
     Route: 048
     Dates: start: 20070701, end: 20090311
  11. METHOTREXATE [Concomitant]
     Dosage: DOSE FORM:PERORAL AGENT
     Route: 048
     Dates: start: 20070719
  12. PREDNISOLONE [Concomitant]
     Dosage: DOSE FORM: PERORAL AGENT
     Route: 048
     Dates: start: 20070701, end: 20090318
  13. PREDNISOLONE [Concomitant]
     Dosage: PERORAL AGENT
     Route: 048
     Dates: start: 20090319, end: 20090602
  14. PREDNISOLONE [Concomitant]
     Dosage: PERORAL AGENT
     Route: 048
     Dates: start: 20090603, end: 20090729

REACTIONS (1)
  - SMALL INTESTINE ULCER [None]
